FAERS Safety Report 11090211 (Version 3)
Quarter: 2015Q3

REPORT INFORMATION
  Report Type: Spontaneous
  Country: TW (occurrence: TW)
  Receive Date: 20150505
  Receipt Date: 20150813
  Transmission Date: 20151125
  Serious: Yes (Hospitalization)
  Sender: FDA-Public Use
  Company Number: TW-ACTELION-A-CH2015-117000

PATIENT
  Age: 37 Year
  Sex: Male

DRUGS (13)
  1. XANTHIUM [Concomitant]
     Dosage: 200 MG, OD
  2. SANDIMMUN [Concomitant]
     Active Substance: CYCLOSPORINE
     Dosage: 25 MG, QD
  3. ROSIS [Concomitant]
     Dosage: 40 MG, QD
  4. CIVIDOID [Concomitant]
     Dosage: 2 MG, BID
  5. REMODULIN [Suspect]
     Active Substance: TREPROSTINIL
     Indication: PULMONARY ARTERIAL HYPERTENSION
     Dosage: 1 MG, UNK
     Route: 065
     Dates: start: 2012
  6. AMIODARONE [Suspect]
     Active Substance: AMIODARONE
     Indication: ARRHYTHMIA
     Dosage: UNK, BID
     Route: 065
  7. PREDNISOLONE. [Concomitant]
     Active Substance: PREDNISOLONE
     Dosage: 5 MG, QD
  8. GASCON [Concomitant]
     Active Substance: DIMETHICONE
     Dosage: 40 MG, QID
  9. OPSUMIT [Suspect]
     Active Substance: MACITENTAN
     Indication: PULMONARY ARTERIAL HYPERTENSION
     Dosage: 10 MG, OD
     Route: 048
     Dates: start: 20150225
  10. VENTAVIS [Suspect]
     Active Substance: ILOPROST
     Indication: PULMONARY ARTERIAL HYPERTENSION
     Dosage: UNK UNK, BID
     Route: 055
     Dates: start: 2010
  11. LEVOZINE [Concomitant]
     Dosage: 5 MG, OD
  12. TRAND [Concomitant]
     Dosage: 250 MG, Q12HRS
  13. CARDOLOL [Concomitant]
     Active Substance: PROPRANOLOL HYDROCHLORIDE
     Dosage: 10 MG, BID

REACTIONS (3)
  - Thyroxine decreased [Not Recovered/Not Resolved]
  - Arrhythmia [Not Recovered/Not Resolved]
  - Tri-iodothyronine decreased [Not Recovered/Not Resolved]

NARRATIVE: CASE EVENT DATE: 20150422
